FAERS Safety Report 6975133-6 (Version None)
Quarter: 2010Q3

REPORT INFORMATION
  Report Type: 
  Country: None (occurrence: None)
  Receive Date: 20100910
  Receipt Date: 20090209
  Transmission Date: 20110219
  Serious: No
  Sender: FDA-Public Use
  Company Number: US-WYE-H08135709

PATIENT
  Sex: Male

DRUGS (4)
  1. PRISTIQ [Suspect]
     Indication: DEPRESSION
     Route: 048
     Dates: start: 20090129
  2. AMBIEN CR [Concomitant]
  3. TESTOSTERONE [Concomitant]
  4. ABILIFY [Suspect]
     Indication: DEPRESSION
     Dates: start: 20090129

REACTIONS (4)
  - FEELING JITTERY [None]
  - IRRITABILITY [None]
  - LOGORRHOEA [None]
  - PSYCHOMOTOR HYPERACTIVITY [None]
